FAERS Safety Report 18986362 (Version 1)
Quarter: 2021Q1

REPORT INFORMATION
  Report Type: Spontaneous
  Country: FR (occurrence: FR)
  Receive Date: 20210309
  Receipt Date: 20210309
  Transmission Date: 20210420
  Serious: Yes (Other)
  Sender: FDA-Public Use
  Company Number: FR-009507513-2103FRA002184

PATIENT
  Age: 85 Year
  Sex: Female

DRUGS (1)
  1. PEMBROLIZUMAB. [Suspect]
     Active Substance: PEMBROLIZUMAB
     Indication: MALIGNANT MELANOMA
     Dosage: CUMULATIVE DOSE WAS 20 MG/KG

REACTIONS (3)
  - Immune-mediated hepatic disorder [Unknown]
  - Skin disorder [Unknown]
  - Acute kidney injury [Recovered/Resolved]
